FAERS Safety Report 4632383-1 (Version None)
Quarter: 2005Q2

REPORT INFORMATION
  Report Type: 
  Country: None (occurrence: None)
  Receive Date: 20050411
  Receipt Date: 20050404
  Transmission Date: 20051028
  Serious: Yes (Life-Threatening, Hospitalization)
  Sender: FDA-Public Use
  Company Number: GB-GLAXOSMITHKLINE-B0376714A

PATIENT
  Age: 88 Year
  Sex: Female

DRUGS (10)
  1. DIGOXIN [Suspect]
     Indication: ATRIAL FIBRILLATION
     Dosage: 125MCG UNKNOWN
     Route: 048
     Dates: end: 20041229
  2. GLICLAZIDE [Concomitant]
     Dosage: 30MG PER DAY
     Route: 048
  3. IRBESARTAN [Concomitant]
     Dosage: 300MG PER DAY
     Route: 048
  4. ISOSORBIDE MONONITRATE [Concomitant]
     Dosage: 10MG TWICE PER DAY
     Route: 048
  5. DILTIAZEM [Concomitant]
     Dosage: 360MG PER DAY
     Route: 048
  6. ASPIRIN [Concomitant]
     Dosage: 75MG PER DAY
     Route: 065
  7. SIMVASTATIN [Concomitant]
     Dosage: 40MG PER DAY
     Route: 065
  8. BISOPROLOL FUMARATE [Concomitant]
     Dosage: 5MG PER DAY
     Route: 065
  9. FUROSEMIDE [Concomitant]
     Dosage: 40MG PER DAY
     Route: 065
  10. PROCHLORPEMAZINE [Concomitant]
     Dosage: 5MG THREE TIMES PER DAY
     Route: 065

REACTIONS (5)
  - ANOREXIA [None]
  - BLOOD PRESSURE DECREASED [None]
  - DEHYDRATION [None]
  - HEART RATE DECREASED [None]
  - MALAISE [None]
